FAERS Safety Report 6450874-8 (Version None)
Quarter: 2009Q4

REPORT INFORMATION
  Report Type: 
  Country: None (occurrence: None)
  Receive Date: 20091123
  Receipt Date: 20090414
  Transmission Date: 20100525
  Serious: Yes (Hospitalization)
  Sender: FDA-Public Use
  Company Number: US-AMGEN-QUU339756

PATIENT
  Sex: Female
  Weight: 80.8 kg

DRUGS (6)
  1. ENBREL [Suspect]
     Indication: RHEUMATOID ARTHRITIS
     Route: 058
     Dates: start: 20080703, end: 20090101
  2. PREDNISONE [Concomitant]
  3. METHOTREXATE [Concomitant]
     Dates: start: 20080401, end: 20090301
  4. FOLIC ACID [Concomitant]
  5. PHENERGAN HCL [Concomitant]
  6. DARVOCET-N 100 [Concomitant]

REACTIONS (1)
  - MYELOID LEUKAEMIA [None]
